FAERS Safety Report 8457433-6 (Version None)
Quarter: 2012Q2

REPORT INFORMATION
  Report Type: 
  Country: None (occurrence: None)
  Receive Date: 20120621
  Receipt Date: 20120613
  Transmission Date: 20120825
  Serious: Yes (Hospitalization, Other)
  Sender: FDA-Public Use
  Company Number: US-MERCK-1112USA01769

PATIENT
  Age: 68 Year
  Sex: Female
  Weight: 64 kg

DRUGS (7)
  1. LIPITOR [Concomitant]
     Route: 048
  2. ALENDRONATE SODIUM [Suspect]
     Route: 048
     Dates: start: 20090716
  3. FOSAMAX [Suspect]
     Route: 048
     Dates: start: 20030313
  4. ALENDRONATE SODIUM [Suspect]
     Indication: OSTEOPENIA
     Route: 048
     Dates: start: 20081023, end: 20090316
  5. JUICE PLUS [Concomitant]
     Route: 065
     Dates: start: 20040101
  6. FOSAMAX [Suspect]
     Indication: OSTEOPENIA
     Route: 048
     Dates: start: 20050708, end: 20080805
  7. FOSAMAX [Suspect]
     Route: 048
     Dates: start: 20081001, end: 20090101

REACTIONS (31)
  - BRADYCARDIA [None]
  - FEMUR FRACTURE [None]
  - FRACTURE NONUNION [None]
  - LOW TURNOVER OSTEOPATHY [None]
  - APPENDIX DISORDER [None]
  - HYPERTENSIVE HEART DISEASE [None]
  - TOOTH EXTRACTION [None]
  - SLEEP DISORDER [None]
  - FALL [None]
  - CARDIAC FAILURE [None]
  - HEPATIC CANCER METASTATIC [None]
  - DIVERTICULUM [None]
  - SPINAL OSTEOARTHRITIS [None]
  - CATARACT [None]
  - BREAST CANCER [None]
  - OEDEMA PERIPHERAL [None]
  - GASTROINTESTINAL DISORDER [None]
  - HAEMORRHOIDS [None]
  - COLON ADENOMA [None]
  - DEVICE FAILURE [None]
  - OESOPHAGEAL IRRITATION [None]
  - HYPERLIPIDAEMIA [None]
  - ADVERSE EVENT [None]
  - ANXIETY [None]
  - SCOLIOSIS [None]
  - VITAMIN D DECREASED [None]
  - ANAEMIA POSTOPERATIVE [None]
  - INTESTINAL POLYP [None]
  - ROTATOR CUFF SYNDROME [None]
  - DYSLIPIDAEMIA [None]
  - BACK DISORDER [None]
